FAERS Safety Report 23227453 (Version 1)
Quarter: 2023Q4

REPORT INFORMATION
  Report Type: Spontaneous
  Country: CN (occurrence: CN)
  Receive Date: 20231124
  Receipt Date: 20231124
  Transmission Date: 20240109
  Serious: Yes (Other)
  Sender: FDA-Public Use
  Company Number: CN-PFIZER INC-PV202300189447

PATIENT
  Age: 62 Year
  Sex: Female

DRUGS (2)
  1. DIFLUCAN [Interacting]
     Active Substance: FLUCONAZOLE
     Indication: Fungal infection
     Dosage: 200 MG, 1X/DAY
     Route: 041
     Dates: start: 20231109, end: 20231113
  2. WARFARIN SODIUM [Interacting]
     Active Substance: WARFARIN SODIUM
     Indication: Anticoagulant therapy
     Dosage: 2.25 MG, 1X/DAY
     Route: 048
     Dates: start: 20231106, end: 20231113

REACTIONS (2)
  - Potentiating drug interaction [Recovering/Resolving]
  - International normalised ratio increased [Recovering/Resolving]

NARRATIVE: CASE EVENT DATE: 20231113
